FAERS Safety Report 9204010 (Version 1)
Quarter: 2013Q1

REPORT INFORMATION
  Report Type: Spontaneous
  Country: US (occurrence: None)
  Receive Date: 20130329
  Receipt Date: 20130329
  Transmission Date: 20140127
  Serious: Yes (Hospitalization)
  Sender: FDA-Public Use
  Company Number: None

PATIENT
  Age: 50 Year
  Sex: Female
  Weight: 63.6 kg

DRUGS (3)
  1. ISONIAZID [Suspect]
     Indication: LATENT TUBERCULOSIS
     Dosage: INH
     Route: 048
     Dates: start: 20121112, end: 20121203
  2. RIFAPENTINE [Suspect]
     Indication: LATENT TUBERCULOSIS
     Dosage: RFP 900 MG WEEKLY PO
     Route: 048
     Dates: start: 20121112, end: 20121203
  3. TYRAMINE (AND MSGLUTAMATE) [Concomitant]

REACTIONS (12)
  - Treatment noncompliance [None]
  - Drug administration error [None]
  - Headache [None]
  - Meningism [None]
  - Neck pain [None]
  - Photophobia [None]
  - Flushing [None]
  - Chest discomfort [None]
  - Wheezing [None]
  - Urticaria [None]
  - Asthenia [None]
  - Drug hypersensitivity [None]
